FAERS Safety Report 10749231 (Version 2)
Quarter: 2015Q2

REPORT INFORMATION
  Report Type: Report from Study
  Country: US (occurrence: None)
  Receive Date: 20150120
  Receipt Date: 20150420
  Transmission Date: 20150821
  Serious: No
  Sender: FDA-Public Use
  Company Number: AEGR000772

PATIENT
  Age: 70 Year
  Sex: Female
  Weight: 62.6 kg

DRUGS (29)
  1. LASIX [Concomitant]
     Active Substance: FUROSEMIDE
  2. MACROBID [Concomitant]
     Active Substance: NITROFURANTOIN\NITROFURANTOIN MONOHYDRATE
  3. XANAX [Concomitant]
     Active Substance: ALPRAZOLAM
  4. LISINOPRIL. [Concomitant]
     Active Substance: LISINOPRIL
  5. PH PLUS [Concomitant]
  6. IC3 WITH DIM [Concomitant]
  7. PROTONIX [Concomitant]
     Active Substance: PANTOPRAZOLE SODIUM
  8. METFORMIN [Concomitant]
     Active Substance: METFORMIN HYDROCHLORIDE
  9. ASPIRIN (ACETYLSALICYLIC ACID) [Concomitant]
     Active Substance: ASPIRIN
  10. LORTAB (HYDROCODONE BITARTRATE, PARACETAMOL, PROMETHAZINE HYDROCHLORIDE) [Concomitant]
  11. CRANBERRY. [Concomitant]
     Active Substance: CRANBERRY
  12. DIFLUCAN [Concomitant]
     Active Substance: FLUCONAZOLE
  13. COREG [Concomitant]
     Active Substance: CARVEDILOL
  14. POTASSIUM CHLORIDE. [Concomitant]
     Active Substance: POTASSIUM CHLORIDE
  15. PYRIDIUM (PHENAZOPYRIDINE HYDROCHLORIDE) [Concomitant]
  16. ZOFRAN (ONDANSETRON HYDROCHLORIDE) [Concomitant]
  17. VITAMIN E (TOCOPHERYL ACETATE) [Concomitant]
  18. MAGOSTEEN [Concomitant]
  19. BUSPIRONE [Concomitant]
     Active Substance: BUSPIRONE HYDROCHLORIDE
  20. NEURONTIN [Concomitant]
     Active Substance: GABAPENTIN
  21. NITROSTAT (GLYCERYL TRINITRATE) [Concomitant]
  22. ZANTAC [Concomitant]
     Active Substance: RANITIDINE HYDROCHLORIDE
  23. GINKO BILOBA (GINKGO BILOBA) [Concomitant]
  24. JUXTAPID [Suspect]
     Active Substance: LOMITAPIDE MESYLATE
     Indication: TYPE IIA HYPERLIPIDAEMIA
     Route: 048
     Dates: start: 20140827
  25. CELEXA [Concomitant]
     Active Substance: CITALOPRAM HYDROBROMIDE
  26. COMPAZINE [Concomitant]
     Active Substance: PROCHLORPERAZINE MALEATE
  27. CYANOCOBALAMIN. [Concomitant]
     Active Substance: CYANOCOBALAMIN
  28. OMEGA 3 (DOCOSAHEXAENOIC ACID, EICOSAPENTAENOIC ACID) [Concomitant]
  29. OMEGA 3 6 9 (OMEGA 9 FATTY ACIDS, OMEGA-3 FATTY ACIDS, OMEGA-6 FATTY ACIDS) [Concomitant]

REACTIONS (5)
  - Weight decreased [None]
  - Contraindicated drug administered [None]
  - Diarrhoea [None]
  - Nausea [None]
  - Urinary tract infection [None]

NARRATIVE: CASE EVENT DATE: 201408
